FAERS Safety Report 7850027-2 (Version None)
Quarter: 2011Q4

REPORT INFORMATION
  Report Type: 
  Country: None (occurrence: None)
  Receive Date: 20111021
  Receipt Date: 20111007
  Transmission Date: 20120403
  Serious: Yes (Other)
  Sender: FDA-Public Use
  Company Number: US-2011-10759

PATIENT
  Age: 22 Year
  Sex: Female

DRUGS (2)
  1. BUSULFAN [Suspect]
     Indication: BONE MARROW DISORDER
     Dosage: ,  , INTRAVENOUS
     Route: 042
  2. CYCLOPHOSPHAMIDE [Concomitant]

REACTIONS (1)
  - PRIMARY HYPOGONADISM [None]
